FAERS Safety Report 7622819-6 (Version None)
Quarter: 2011Q3

REPORT INFORMATION
  Report Type: 
  Country: None (occurrence: None)
  Receive Date: 20110720
  Receipt Date: 20110707
  Transmission Date: 20111222
  Serious: No
  Sender: FDA-Public Use
  Company Number: CA-ELI_LILLY_AND_COMPANY-CA201107004274

PATIENT
  Sex: Male

DRUGS (1)
  1. CIALIS [Suspect]
     Indication: ERECTILE DYSFUNCTION
     Dosage: UNK

REACTIONS (1)
  - VISUAL IMPAIRMENT [None]
